FAERS Safety Report 6251516-7 (Version None)
Quarter: 2009Q2

REPORT INFORMATION
  Report Type: 
  Country: None (occurrence: None)
  Receive Date: 20090626
  Receipt Date: 20090626
  Transmission Date: 20091009
  Serious: Yes (Other)
  Sender: FDA-Public Use
  Company Number: None

PATIENT
  Age: 15 Year
  Sex: Male
  Weight: 56.6996 kg

DRUGS (2)
  1. LEVETIRACETAM [Suspect]
     Indication: PETIT MAL EPILEPSY
     Dosage: 1 TABLET TWICE DAILY PO
     Route: 048
     Dates: start: 20090209, end: 20090509
  2. KEPPRA [Suspect]
     Dosage: 1 TABLET TWICE DAILY PO
     Route: 048
     Dates: start: 20071009, end: 20090209

REACTIONS (5)
  - AMNESIA [None]
  - CONDITION AGGRAVATED [None]
  - PETIT MAL EPILEPSY [None]
  - PRODUCT SUBSTITUTION ISSUE [None]
  - THERAPEUTIC RESPONSE DECREASED [None]
